FAERS Safety Report 20681701 (Version 3)
Quarter: 2022Q2

REPORT INFORMATION
  Report Type: Report from Study
  Country: PL (occurrence: PL)
  Receive Date: 20220406
  Receipt Date: 20220426
  Transmission Date: 20220721
  Serious: Yes (Hospitalization)
  Sender: FDA-Public Use
  Company Number: PL-ABBVIE-22K-129-4348471-00

PATIENT
  Sex: Female

DRUGS (2)
  1. CARBIDOPA\LEVODOPA [Suspect]
     Active Substance: CARBIDOPA\LEVODOPA
     Indication: Parkinson^s disease
     Route: 050
     Dates: start: 202006, end: 20220326
  2. CARBIDOPA\LEVODOPA [Suspect]
     Active Substance: CARBIDOPA\LEVODOPA
     Route: 050
     Dates: start: 20220330

REACTIONS (5)
  - Device dislocation [Recovered/Resolved]
  - Medical device change [Recovered/Resolved]
  - Medical device change [Recovered/Resolved]
  - Abdominal wall disorder [Unknown]
  - Stoma site infection [Unknown]

NARRATIVE: CASE EVENT DATE: 20220101
